FAERS Safety Report 8991298 (Version 2)
Quarter: 2013Q1

REPORT INFORMATION
  Report Type: Report from Study
  Country: FR (occurrence: FR)
  Receive Date: 20121231
  Receipt Date: 20130114
  Transmission Date: 20140127
  Serious: Yes (Other)
  Sender: FDA-Public Use
  Company Number: FR-ROCHE-1172745

PATIENT
  Sex: Female

DRUGS (3)
  1. BEVACIZUMAB [Suspect]
     Indication: BREAST CANCER
     Dosage: LAST DOSE ADMINISTERED 15 MG/KG
     Route: 065
     Dates: start: 20110718, end: 20120426
  2. ATACAND [Concomitant]
  3. ISOPTINE [Concomitant]

REACTIONS (1)
  - Renal failure [Recovered/Resolved]
